FAERS Safety Report 4328344-2 (Version None)
Quarter: 2004Q1

REPORT INFORMATION
  Report Type: 
  Country: None (occurrence: None)
  Receive Date: 20040331
  Receipt Date: 20040322
  Transmission Date: 20041129
  Serious: Yes (Other)
  Sender: FDA-Public Use
  Company Number: PHFR2004GB01525

PATIENT
  Age: 38 Year
  Sex: Male

DRUGS (7)
  1. VALSARTAN [Suspect]
     Indication: HYPERTENSION
     Dosage: 80MG/DAY
     Route: 048
     Dates: start: 20040217, end: 20040218
  2. UNIPHYLLIN ^NAPP^ [Concomitant]
     Indication: ASTHMA
     Dosage: 1 UNK, BID
     Route: 048
  3. PROTIUM [Concomitant]
     Indication: HIATUS HERNIA
     Dosage: 1 UNK, BID
     Route: 048
  4. ZIRTEK [Concomitant]
     Dosage: 1 UNK, QD
     Route: 048
  5. AEROBEC [Concomitant]
     Route: 055
  6. AEROLIN ^3M^ [Concomitant]
     Route: 055
  7. SEREVENT [Concomitant]
     Dosage: UNK, UNK
     Route: 055

REACTIONS (3)
  - DIZZINESS [None]
  - SPEECH DISORDER [None]
  - SWELLING FACE [None]
